FAERS Safety Report 4504271-2 (Version None)
Quarter: 2004Q4

REPORT INFORMATION
  Report Type: 
  Country: None (occurrence: None)
  Receive Date: 20041112
  Receipt Date: 20041108
  Transmission Date: 20050328
  Serious: Yes (Death)
  Sender: FDA-Public Use
  Company Number: US-JNJFOC-20041006764

PATIENT
  Age: 81 Year
  Sex: Female

DRUGS (2)
  1. EXTRA STRENGTH TYLENOL [Suspect]
     Indication: PAIN
     Dosage: SEE IMAGE
     Dates: start: 20030705, end: 20030706
  2. EXTRA STRENGTH TYLENOL [Suspect]
     Indication: PAIN
     Dosage: SEE IMAGE
     Dates: start: 20030707, end: 20030707

REACTIONS (2)
  - OVERDOSE [None]
  - PAIN [None]
